FAERS Safety Report 6744261-2 (Version None)
Quarter: 2010Q2

REPORT INFORMATION
  Report Type: 
  Country: None (occurrence: None)
  Receive Date: 20100527
  Receipt Date: 20100517
  Transmission Date: 20101027
  Serious: Yes (Other)
  Sender: FDA-Public Use
  Company Number: US-BAYER-201018291NA

PATIENT
  Age: 58 Year
  Sex: Female

DRUGS (7)
  1. MAGNEVIST [Suspect]
     Indication: ANGIOGRAM
     Dates: start: 20040901, end: 20040901
  2. MAGNEVIST [Suspect]
     Dates: start: 20050507, end: 20050507
  3. RECORMON-EPO [Concomitant]
     Dosage: DOSE: 5,000U/2X PER WEEK
     Dates: start: 20040501
  4. BENEXOL [Concomitant]
  5. DORIXINA [Concomitant]
  6. CAPOTEN [Concomitant]
  7. WARFARIN SODIUM [Concomitant]

REACTIONS (24)
  - ARTHRALGIA [None]
  - BONE PAIN [None]
  - BURNING SENSATION [None]
  - DEFORMITY [None]
  - EXTREMITY CONTRACTURE [None]
  - FIBROSIS [None]
  - GENERAL PHYSICAL HEALTH DETERIORATION [None]
  - JOINT RANGE OF MOTION DECREASED [None]
  - JOINT STIFFNESS [None]
  - MOBILITY DECREASED [None]
  - MUSCULAR WEAKNESS [None]
  - MUSCULOSKELETAL STIFFNESS [None]
  - MYALGIA [None]
  - NEPHROGENIC SYSTEMIC FIBROSIS [None]
  - OEDEMA PERIPHERAL [None]
  - PAIN IN EXTREMITY [None]
  - PRURITUS [None]
  - PURPURA [None]
  - SCAR [None]
  - SKIN DISCOLOURATION [None]
  - SKIN FIBROSIS [None]
  - SKIN HYPERTROPHY [None]
  - SKIN INDURATION [None]
  - SKIN TIGHTNESS [None]
